FAERS Safety Report 24250679 (Version 1)
Quarter: 2024Q3

REPORT INFORMATION
  Report Type: Spontaneous
  Country: CH (occurrence: None)
  Receive Date: 20240826
  Receipt Date: 20240826
  Transmission Date: 20241017
  Serious: Yes (Other)
  Sender: ASTRAZENECA
  Company Number: 2024A193359

PATIENT
  Age: 17 Year
  Sex: Male
  Weight: 50.4 kg

DRUGS (24)
  1. NEXIUM [Suspect]
     Active Substance: ESOMEPRAZOLE MAGNESIUM
     Indication: Product used for unknown indication
     Dosage: 10 MILLIGRAM, EVERY 12 HRS
     Route: 048
     Dates: start: 20240422
  2. LAMICTAL [Suspect]
     Active Substance: LAMOTRIGINE
     Indication: Lennox-Gastaut syndrome
     Dosage: 100 MILLIGRAM, EVERY 12 HRS
     Route: 048
     Dates: start: 20240528, end: 20240620
  3. LAMICTAL [Suspect]
     Active Substance: LAMOTRIGINE
     Indication: Lennox-Gastaut syndrome
     Dosage: 180 MILLIGRAM, 1/DAY
     Route: 048
     Dates: start: 20240621
  4. LERCANIDIPINE [Suspect]
     Active Substance: LERCANIDIPINE
     Indication: Product used for unknown indication
     Dosage: 10 MILLIGRAM, 1/DAY
     Route: 048
     Dates: start: 20240501, end: 20240618
  5. LAMOTRIGINE [Suspect]
     Active Substance: LAMOTRIGINE
     Dosage: 3.6 DOSAGE FORM, 1/DAY
     Route: 048
     Dates: start: 2015
  6. LAMOTRIGINE [Suspect]
     Active Substance: LAMOTRIGINE
     Dosage: 5 MILLIGRAM5.0MG UNKNOWN
     Route: 048
     Dates: start: 2015
  7. LAMOTRIGINE [Suspect]
     Active Substance: LAMOTRIGINE
     Dosage: 25 MILLIGRAM25.0MG UNKNOWN
     Route: 048
     Dates: start: 2015
  8. ABILIFY [Suspect]
     Active Substance: ARIPIPRAZOLE
     Indication: Product used for unknown indication
     Dosage: 5 MILLIGRAM, 1/DAY
     Route: 048
     Dates: start: 20240422
  9. CELLCEPT [Suspect]
     Active Substance: MYCOPHENOLATE MOFETIL
     Indication: Renal transplant
     Dosage: 1000 MILLIGRAM, EVERY 12 HRS
     Route: 048
     Dates: start: 202401
  10. CYCLOSPORINE [Suspect]
     Active Substance: CYCLOSPORINE
     Indication: Renal transplant
     Dosage: 240 MILLIGRAM, EVERY 12 HRS
     Route: 048
     Dates: start: 202401
  11. PREDNISOLONE [Suspect]
     Active Substance: PREDNISOLONE
     Indication: Renal transplant
     Dosage: 5 MILLIGRAM5.0MG UNKNOWN
     Route: 048
     Dates: start: 202401
  12. GENOTROPIN [Suspect]
     Active Substance: SOMATROPIN
     Indication: Hypopituitarism
     Dosage: 2 MILLIGRAM, 1/DAY
     Route: 058
     Dates: start: 20220727
  13. TESTOSTERONE [Suspect]
     Active Substance: TESTOSTERONE
     Indication: Hypopituitarism
     Dosage: 200 MILLIGRAM, EVERY 4 WEEKS
     Route: 030
  14. VALPROATE SODIUM [Suspect]
     Active Substance: VALPROATE SODIUM
     Dosage: 600 MILLIGRAM, EVERY 8 HRS
     Route: 048
     Dates: start: 2017
  15. ASPIRIN DL-LYSINE [Concomitant]
     Active Substance: ASPIRIN DL-LYSINE
     Dosage: 100 MILLIGRAM, 1/DAY
     Route: 048
     Dates: start: 20240527
  16. CLOBAZAM [Concomitant]
     Active Substance: CLOBAZAM
     Dosage: 10 MILLIGRAM, 1/DAY
     Route: 048
     Dates: start: 2009
  17. BEXIN [Concomitant]
     Active Substance: DEXTROMETHORPHAN HYDROBROMIDE
     Indication: Cough
     Dosage: 1 DOSAGE FORM, AS NEEDED1.0DF INTERMITTENT
     Route: 048
  18. EUTHYROX [Concomitant]
     Active Substance: LEVOTHYROXINE SODIUM
     Indication: Hypothyroidism
     Dosage: 100 MICROGRAM, 1/DAY
     Route: 048
     Dates: start: 202402
  19. TEMESTA [Concomitant]
     Dosage: 2 MILLIGRAM, AS NEEDED2.0MG INTERMITTENT
     Route: 048
     Dates: start: 20240422
  20. MELATONIN [Concomitant]
     Active Substance: MELATONIN
     Dosage: 10 MILLIGRAM, 1/DAY
     Route: 048
     Dates: start: 20240422
  21. METAMIZOLE [Concomitant]
     Active Substance: METAMIZOLE
     Dosage: 500 MILLIGRAM, AS NEEDED500.0MG INTERMITTENT
     Route: 048
     Dates: start: 20240422
  22. ONDANSETRON [Concomitant]
     Active Substance: ONDANSETRON
     Dosage: 4 MILLIGRAM, AS NEEDED4.0MG INTERMITTENT
     Route: 048
     Dates: start: 20240422
  23. BACTRIM [Concomitant]
     Active Substance: SULFAMETHOXAZOLE\TRIMETHOPRIM
     Dosage: 960 MILLIGRAM, 3/WEEK
     Route: 048
  24. VELTASSA [Concomitant]
     Active Substance: PATIROMER
     Dosage: 16.8 GRAM, 1/DAY
     Route: 048
     Dates: start: 20240422

REACTIONS (1)
  - Oedema [Not Recovered/Not Resolved]

NARRATIVE: CASE EVENT DATE: 20240601
